FAERS Safety Report 22802970 (Version 2)
Quarter: 2024Q2

REPORT INFORMATION
  Report Type: Spontaneous
  Country: IN (occurrence: IN)
  Receive Date: 20230809
  Receipt Date: 20240504
  Transmission Date: 20240715
  Serious: Yes (Other)
  Sender: FDA-Public Use
  Company Number: IN-Accord-371752

PATIENT
  Age: 72 Year
  Sex: Male

DRUGS (4)
  1. OXALIPLATIN [Suspect]
     Active Substance: OXALIPLATIN
     Indication: Rectal cancer stage III
     Route: 042
  2. LEUCOVORIN [Concomitant]
     Active Substance: LEUCOVORIN\LEUCOVORIN CALCIUM
     Indication: Rectal cancer stage III
     Dosage: OVER 2 H EACH CYCLE REPEATED AFTER 2 WEEKS
  3. FLUOROURACIL [Concomitant]
     Active Substance: FLUOROURACIL
     Indication: Rectal cancer stage III
     Dosage: SLOW INFUSION EACH CYCLE REPEATED AFTER 2 WEEKS
  4. DEXTROSE [Concomitant]
     Active Substance: DEXTROSE\DEXTROSE MONOHYDRATE
     Indication: Rectal cancer stage III
     Dosage: SLOW INFUSION EACH CYCLE REPEATED AFTER 2 WEEKS

REACTIONS (4)
  - Optic atrophy [Unknown]
  - Visual field defect [Unknown]
  - Creatinine renal clearance decreased [Unknown]
  - Papilloedema [Recovered/Resolved]
